FAERS Safety Report 6579504-1 (Version None)
Quarter: 2010Q1

REPORT INFORMATION
  Report Type: 
  Country: None (occurrence: None)
  Receive Date: 20100210
  Receipt Date: 20100210
  Transmission Date: 20100710
  Serious: No
  Sender: FDA-Public Use
  Company Number: None

PATIENT
  Age: 75 Year
  Sex: Male
  Weight: 113.3993 kg

DRUGS (1)
  1. AZASITE [Suspect]
     Indication: BLEPHARITIS
     Dosage: 1 DROP OPHTHALMIC
     Route: 047
     Dates: start: 20091214, end: 20091214

REACTIONS (2)
  - INJECTION SITE DERMATITIS [None]
  - INJECTION SITE HYPERSENSITIVITY [None]
